FAERS Safety Report 7479570-5 (Version None)
Quarter: 2011Q2

REPORT INFORMATION
  Report Type: 
  Country: None (occurrence: None)
  Receive Date: 20110513
  Receipt Date: 20110127
  Transmission Date: 20111010
  Serious: Yes (Other)
  Sender: FDA-Public Use
  Company Number: US-AMGEN-USASP2011005270

PATIENT
  Sex: Male
  Weight: 66.2 kg

DRUGS (4)
  1. PINDOLOL [Concomitant]
     Dosage: 5 MG, QD
  2. NPLATE [Suspect]
     Indication: IDIOPATHIC THROMBOCYTOPENIC PURPURA
     Dosage: 481 A?G, UNK
     Dates: start: 20100507
  3. FLOMAX [Concomitant]
     Dosage: 0.4 MG, UNK
  4. COUMADIN [Concomitant]
     Dosage: 5 MG, UNK

REACTIONS (1)
  - THERAPEUTIC RESPONSE DECREASED [None]
